FAERS Safety Report 8905316 (Version 1)
Quarter: 2012Q4

REPORT INFORMATION
  Report Type: 
  Country: CA (occurrence: CA)
  Receive Date: 20121111
  Receipt Date: 20121111
  Transmission Date: 20130627
  Serious: Yes (Other)
  Sender: FDA-Public Use
  Company Number: PHMT2006CA01318

PATIENT
  Sex: Female

DRUGS (11)
  1. SANDOSTATIN LAR [Suspect]
     Indication: CARCINOID TUMOUR
     Dosage: 30 mg BIW
     Dates: start: 20051020
  2. ADVAIR [Concomitant]
  3. ALTACE [Concomitant]
  4. APO-FOLIC [Concomitant]
  5. GLUCONORM [Concomitant]
     Indication: DIABETES MELLITUS
  6. ATORVASTATIN [Concomitant]
  7. LOSEC                                   /CAN/ [Concomitant]
  8. SPIRIVA [Concomitant]
  9. VENTOLIN DISKUS [Concomitant]
  10. VITAMIN B COMPLEX [Concomitant]
  11. VITAMIN C [Concomitant]

REACTIONS (15)
  - Cystitis [Unknown]
  - Blood pressure decreased [Unknown]
  - Fatigue [Unknown]
  - Crying [Unknown]
  - Cough [Unknown]
  - Dry mouth [Unknown]
  - Arthralgia [Unknown]
  - Myalgia [Unknown]
  - Oesophageal pain [Unknown]
  - Anxiety [Unknown]
  - Asthenia [Unknown]
  - Dyspnoea [Unknown]
  - Nausea [Unknown]
  - Vomiting [Unknown]
  - Hyperglycaemia [Unknown]
